FAERS Safety Report 7461183-2 (Version None)
Quarter: 2011Q2

REPORT INFORMATION
  Report Type: 
  Country: None (occurrence: None)
  Receive Date: 20110505
  Receipt Date: 20110426
  Transmission Date: 20111010
  Serious: Yes (Other)
  Sender: FDA-Public Use
  Company Number: FR-ASTRAZENECA-2011SE04252

PATIENT
  Age: 38 Year
  Sex: Female
  Weight: 93 kg

DRUGS (5)
  1. URBANYL [Concomitant]
  2. PROZAC [Concomitant]
  3. PREVISCAN [Concomitant]
  4. NEXIUM [Suspect]
     Indication: GASTROOESOPHAGEAL REFLUX DISEASE
     Route: 048
     Dates: start: 20090101
  5. TIMOFEROL [Concomitant]

REACTIONS (2)
  - FOLATE DEFICIENCY [None]
  - IRON DEFICIENCY ANAEMIA [None]
